FAERS Safety Report 4493116-5 (Version None)
Quarter: 2004Q4

REPORT INFORMATION
  Report Type: 
  Country: None (occurrence: None)
  Receive Date: 20041104
  Receipt Date: 20041025
  Transmission Date: 20050328
  Serious: Yes (Congenital Anomaly)
  Sender: FDA-Public Use
  Company Number: PL-GLAXOSMITHKLINE-B0350039A

PATIENT
  Sex: Female
  Weight: 3.8 kg

DRUGS (1)
  1. LAMOTRIGINE [Suspect]
     Indication: DRUG USE FOR UNKNOWN INDICATION

REACTIONS (2)
  - DRUG EXPOSURE DURING PREGNANCY [None]
  - HYDRONEPHROSIS [None]
